FAERS Safety Report 6607664-2 (Version None)
Quarter: 2010Q1

REPORT INFORMATION
  Report Type: 
  Country: None (occurrence: None)
  Receive Date: 20100301
  Receipt Date: 20100222
  Transmission Date: 20100710
  Serious: Yes (Other)
  Sender: FDA-Public Use
  Company Number: DE-JNJFOC-20100209849

PATIENT
  Sex: Female

DRUGS (2)
  1. REMICADE [Suspect]
     Indication: RHEUMATOID ARTHRITIS
     Route: 042
  2. ELONTRIL [Suspect]
     Indication: DEPRESSION
     Route: 048

REACTIONS (4)
  - ASTHENIA [None]
  - PRURITUS [None]
  - RESPIRATORY DISTRESS [None]
  - TREMOR [None]
